FAERS Safety Report 18240135 (Version 1)
Quarter: 2020Q3

REPORT INFORMATION
  Report Type: Other
  Country: DE (occurrence: DE)
  Receive Date: 20200908
  Receipt Date: 20200908
  Transmission Date: 20201103
  Serious: Yes (Other)
  Sender: FDA-Public Use
  Company Number: DE-ROCHE-2670382

PATIENT
  Age: 61 Year
  Sex: Female
  Weight: 68 kg

DRUGS (19)
  1. OCRELIZUMAB. [Suspect]
     Active Substance: OCRELIZUMAB
     Indication: MULTIPLE SCLEROSIS
     Route: 042
     Dates: start: 20190607
  2. AERIUS [Concomitant]
     Route: 048
     Dates: start: 20181122, end: 20181124
  3. LIPOCOL [Concomitant]
     Route: 048
     Dates: start: 20180919, end: 20181231
  4. FERRO SANOL [Concomitant]
     Active Substance: FERROUS GLYCINE SULFATE
     Indication: CONSTIPATION
     Dosage: DEFINITION OF THE INTERVAL: AS REQUIRED
     Route: 048
     Dates: start: 201909
  5. RANITIDINE. [Concomitant]
     Active Substance: RANITIDINE
     Route: 048
     Dates: start: 20181122, end: 20181124
  6. ZOLPIDEM [Concomitant]
     Active Substance: ZOLPIDEM TARTRATE
     Route: 048
     Dates: start: 201807
  7. LYRICA [Concomitant]
     Active Substance: PREGABALIN
     Indication: DYSAESTHESIA
     Route: 048
     Dates: start: 2009, end: 201910
  8. RANITIDINE. [Concomitant]
     Active Substance: RANITIDINE
     Route: 048
     Dates: start: 20181206, end: 20181208
  9. AERIUS [Concomitant]
     Route: 048
     Dates: start: 20181206, end: 20181208
  10. OCRELIZUMAB. [Suspect]
     Active Substance: OCRELIZUMAB
     Route: 042
     Dates: start: 20181123, end: 20181207
  11. MOVICOL [Concomitant]
     Active Substance: POLYETHYLENE GLYCOL 3350\POTASSIUM CHLORIDE\SODIUM BICARBONATE\SODIUM CHLORIDE
     Indication: CONSTIPATION
     Dosage: DEFINITION OF THE INTERVAL: AS REQUIRED
     Dates: start: 201909
  12. PREDNISOLONE. [Concomitant]
     Active Substance: PREDNISOLONE
     Route: 048
     Dates: start: 20181207, end: 20181207
  13. PREDNISOLONE. [Concomitant]
     Active Substance: PREDNISOLONE
     Route: 048
     Dates: start: 20181123, end: 20181123
  14. GABAPENTIN. [Concomitant]
     Active Substance: GABAPENTIN
     Indication: NEURALGIA
     Route: 048
     Dates: start: 201909
  15. CYMBALTA [Concomitant]
     Active Substance: DULOXETINE HYDROCHLORIDE
     Indication: PARAESTHESIA
     Route: 048
     Dates: start: 2009
  16. BETMIGA [Concomitant]
     Active Substance: MIRABEGRON
     Indication: BLADDER DYSFUNCTION
     Route: 048
     Dates: start: 20180917
  17. DEKRISTOL [Concomitant]
     Active Substance: CHOLECALCIFEROL
     Route: 048
     Dates: start: 20130308
  18. PANTOPRAZOL [Concomitant]
     Active Substance: PANTOPRAZOLE SODIUM
     Route: 048
     Dates: start: 2012
  19. DIMETHYL FUMARATE [Concomitant]
     Active Substance: DIMETHYL FUMARATE
     Dates: start: 201409

REACTIONS (1)
  - Pneumonia [Unknown]

NARRATIVE: CASE EVENT DATE: 202001
